FAERS Safety Report 15692231 (Version 2)
Quarter: 2018Q4

REPORT INFORMATION
  Report Type: Report from Study
  Country: None (occurrence: CA)
  Receive Date: 20181205
  Receipt Date: 20181213
  Transmission Date: 20190205
  Serious: Yes (Hospitalization)
  Sender: FDA-Public Use
  Company Number: CA-ABBVIE-18K-028-2580060-00

PATIENT
  Age: 26 Year
  Sex: Female

DRUGS (1)
  1. HUMIRA [Suspect]
     Active Substance: ADALIMUMAB
     Indication: ANKYLOSING SPONDYLITIS
     Route: 058
     Dates: start: 20151126

REACTIONS (7)
  - Ketoacidosis [Unknown]
  - Wisdom teeth removal [Unknown]
  - Mouth swelling [Recovering/Resolving]
  - Procedural complication [Unknown]
  - Oral disorder [Not Recovered/Not Resolved]
  - Drug interaction [Unknown]
  - Postoperative wound infection [Unknown]

NARRATIVE: CASE EVENT DATE: 2018
